FAERS Safety Report 15143728 (Version 1)
Quarter: 2018Q3

REPORT INFORMATION
  Report Type: Spontaneous
  Country: US (occurrence: US)
  Receive Date: 20180713
  Receipt Date: 20180713
  Transmission Date: 20181010
  Serious: No
  Sender: FDA-Public Use
  Company Number: US-AMGEN-USASP2010002487

PATIENT
  Age: 56 Year
  Sex: Female
  Weight: 77.1 kg

DRUGS (4)
  1. VALCYTE [Concomitant]
     Active Substance: VALGANCICLOVIR HYDROCHLORIDE
     Dosage: 450 MG, QD
     Route: 048
     Dates: start: 201006
  2. PROGRAF [Concomitant]
     Active Substance: TACROLIMUS\TACROLIMUS ANHYDROUS
     Dosage: 1 MG, BID
     Route: 048
     Dates: start: 201006
  3. CARDIZEM [Concomitant]
     Active Substance: DILTIAZEM HYDROCHLORIDE
     Dosage: 240 MG, QD
     Route: 048
     Dates: start: 2008
  4. PROCRIT [Suspect]
     Active Substance: ERYTHROPOIETIN
     Indication: PRODUCT USED FOR UNKNOWN INDICATION
     Dosage: UNK UNK, Q2WK
     Dates: start: 201008, end: 201008

REACTIONS (2)
  - Injection site pain [Not Recovered/Not Resolved]
  - Injection site erythema [Not Recovered/Not Resolved]

NARRATIVE: CASE EVENT DATE: 201008
